FAERS Safety Report 4390447-4 (Version None)
Quarter: 2004Q2

REPORT INFORMATION
  Report Type: 
  Country: None (occurrence: None)
  Receive Date: 20040630
  Receipt Date: 20040616
  Transmission Date: 20050107
  Serious: Yes (Life-Threatening)
  Sender: FDA-Public Use
  Company Number: A06200400179

PATIENT
  Age: 79 Year
  Sex: Female

DRUGS (6)
  1. FASTURETEC - (RASBURICASE) - POWDER - 7.5 MG [Suspect]
     Indication: HYPERURICAEMIA
     Dosage: 7.5 MG ONCE; INTRVENOUS DRIP
     Route: 041
     Dates: start: 20040610, end: 20040610
  2. HYDROXYUREA [Concomitant]
  3. LOBIVON (NEBI8VOLOL HYDROCHLORIDE) [Concomitant]
  4. INTRA-UTERINE [Concomitant]
  5. CARDURA [Concomitant]
  6. ZANEDIP (LERCANIDIPINE HYDROCHLORIDE) [Concomitant]

REACTIONS (2)
  - CHEST PAIN [None]
  - INFUSION RELATED REACTION [None]
